FAERS Safety Report 23623664 (Version 2)
Quarter: 2024Q2

REPORT INFORMATION
  Report Type: Spontaneous
  Country: US (occurrence: None)
  Receive Date: 20240312
  Receipt Date: 20240409
  Transmission Date: 20240717
  Serious: Yes (Disabling, Other)
  Sender: FDA-Public Use
  Company Number: 2024A053917

PATIENT
  Age: 62 Year
  Sex: Female
  Weight: 66.6 kg

DRUGS (3)
  1. TRUQAP [Interacting]
     Active Substance: CAPIVASERTIB
     Indication: Breast cancer metastatic
     Dosage: DAYS 1-4 OF EACH WEEK
     Route: 048
     Dates: start: 20240217, end: 20240228
  2. FULVESTRANT [Interacting]
     Active Substance: FULVESTRANT
     Indication: Breast cancer metastatic
     Route: 030
     Dates: start: 20240202
  3. MORPHINE [Concomitant]
     Active Substance: MORPHINE

REACTIONS (7)
  - Metastases to bone [Unknown]
  - Arthralgia [Recovering/Resolving]
  - Swelling [Recovering/Resolving]
  - Rheumatoid arthritis [Unknown]
  - Drug interaction [Unknown]
  - Malaise [Unknown]
  - Pain [Recovering/Resolving]
